FAERS Safety Report 10426199 (Version 3)
Quarter: 2015Q1

REPORT INFORMATION
  Report Type: Spontaneous
  Country: JP (occurrence: JP)
  Receive Date: 20140903
  Receipt Date: 20150109
  Transmission Date: 20150720
  Serious: Yes (Hospitalization, Other)
  Sender: FDA-Public Use
  Company Number: JP-ROCHE-1451545

PATIENT
  Age: 62 Year
  Sex: Female
  Weight: 51 kg

DRUGS (12)
  1. HYCAMTIN [Concomitant]
     Active Substance: TOPOTECAN HYDROCHLORIDE
     Indication: OVARIAN CANCER RECURRENT
     Route: 041
     Dates: start: 20140512, end: 201406
  2. AVASTIN [Suspect]
     Active Substance: BEVACIZUMAB
     Route: 041
     Dates: start: 20140714, end: 20140714
  3. GRANISETRON [Concomitant]
     Active Substance: GRANISETRON
     Indication: PROPHYLAXIS OF NAUSEA AND VOMITING
     Route: 041
     Dates: start: 20140623, end: 20140627
  4. LOXONIN [Suspect]
     Active Substance: LOXOPROFEN SODIUM
     Indication: PAIN
     Route: 048
     Dates: start: 201407
  5. MUCOSTA [Concomitant]
     Active Substance: REBAMIPIDE
     Indication: PAIN
     Route: 048
     Dates: start: 201407
  6. HYCAMTIN [Concomitant]
     Active Substance: TOPOTECAN HYDROCHLORIDE
     Indication: OVARIAN CANCER RECURRENT
     Route: 041
     Dates: start: 20140714, end: 20140718
  7. MAGLAX [Concomitant]
     Active Substance: MAGNESIUM OXIDE
     Indication: CONSTIPATION
     Route: 048
     Dates: start: 201403
  8. DAIKENCHUTO [Concomitant]
     Active Substance: HERBALS
     Indication: CONSTIPATION
     Route: 048
     Dates: start: 201405
  9. AVASTIN [Suspect]
     Active Substance: BEVACIZUMAB
     Indication: OVARIAN CANCER RECURRENT
     Route: 041
     Dates: start: 20140623, end: 20140623
  10. HYCAMTIN [Concomitant]
     Active Substance: TOPOTECAN HYDROCHLORIDE
     Indication: OVARIAN CANCER RECURRENT
     Route: 041
     Dates: start: 20140623, end: 20140627
  11. PERAPRIN [Concomitant]
     Active Substance: METOCLOPRAMIDE
     Indication: PROPHYLAXIS OF NAUSEA AND VOMITING
     Route: 048
     Dates: start: 201403
  12. GRANISETRON [Concomitant]
     Active Substance: GRANISETRON
     Indication: PROPHYLAXIS OF NAUSEA AND VOMITING
     Route: 041
     Dates: start: 20140714, end: 20140718

REACTIONS (5)
  - Pyrexia [Recovering/Resolving]
  - Gastrointestinal perforation [Recovering/Resolving]
  - Peptic ulcer [Unknown]
  - Subileus [Unknown]
  - Malignant ascites [Unknown]

NARRATIVE: CASE EVENT DATE: 20140728
